FAERS Safety Report 9938511 (Version 2)
Quarter: 2015Q4

REPORT INFORMATION
  Report Type: Report from Study
  Country: US (occurrence: US)
  Receive Date: 20140303
  Receipt Date: 20151127
  Transmission Date: 20160305
  Serious: Yes (Other)
  Sender: FDA-Public Use
  Company Number: US-ROCHE-1345609

PATIENT
  Sex: Female

DRUGS (8)
  1. TROPICAMIDE. [Concomitant]
     Active Substance: TROPICAMIDE
     Route: 065
  2. PHENYLEPHRINE [Concomitant]
     Active Substance: PHENYLEPHRINE\PHENYLEPHRINE HYDROCHLORIDE
     Route: 065
  3. VIGAMOX [Concomitant]
     Active Substance: MOXIFLOXACIN HYDROCHLORIDE
  4. LUCENTIS [Suspect]
     Active Substance: RANIBIZUMAB
     Indication: DIABETIC RETINAL OEDEMA
     Dosage: DOSES RECEIVED ON 04/OCT/2011,13/DEC/2011, 31/JAN/2012, 27/MAR/2012, 12/JUN/2012, 24/JUL/2012, 04/SE
     Route: 050
  5. LUCENTIS [Suspect]
     Active Substance: RANIBIZUMAB
     Route: 050
  6. AVASTIN [Suspect]
     Active Substance: BEVACIZUMAB
     Indication: DIABETIC RETINAL OEDEMA
     Dosage: DOSES RECEIVED ON 06/SEP/2011, 04/OCT/2011, 01/NOV/2011, 13/DEC/2011, 31/JAN/2012, 27/MAR/2012, 08/M
     Route: 050
  7. BROMDAY [Concomitant]
     Active Substance: BROMFENAC SODIUM
     Dosage: OS 1 GTT QD X 3 WKS
     Route: 047
     Dates: start: 20120308, end: 20120329
  8. PREDNISOLONE ACETATE. [Concomitant]
     Active Substance: PREDNISOLONE ACETATE
     Dosage: 1 GTT OS QID 2WKS, BID 2 WKS
     Route: 047
     Dates: start: 20120315, end: 20120412

REACTIONS (5)
  - Diabetic retinal oedema [Unknown]
  - Vitreous floaters [Unknown]
  - Photopsia [Unknown]
  - Overdose [Unknown]
  - Off label use [Unknown]
